FAERS Safety Report 6029152-7 (Version None)
Quarter: 2009Q1

REPORT INFORMATION
  Report Type: 
  Country: None (occurrence: None)
  Receive Date: 20090106
  Receipt Date: 20080729
  Transmission Date: 20090719
  Serious: No
  Sender: FDA-Public Use
  Company Number: US-TYCO HEALTHCARE/MALLINCKRODT-T200801227

PATIENT

DRUGS (3)
  1. OPTIMARK [Suspect]
     Dates: start: 20080201, end: 20080201
  2. ANTIHYPERTENSIVES [Concomitant]
     Indication: BLOOD PRESSURE INCREASED
     Dosage: UNK, QD
     Route: 048
  3. THYROID THERAPY [Concomitant]
     Indication: HYPOTHYROIDISM
     Dosage: UNK, QD
     Route: 048

REACTIONS (5)
  - ACCIDENTAL NEEDLE STICK [None]
  - ERYTHEMA [None]
  - INFLAMMATION OF WOUND [None]
  - OEDEMA PERIPHERAL [None]
  - TENDERNESS [None]
